FAERS Safety Report 4538165-3 (Version None)
Quarter: 2004Q4

REPORT INFORMATION
  Report Type: 
  Country: None (occurrence: None)
  Receive Date: 20041221
  Receipt Date: 20041215
  Transmission Date: 20050328
  Serious: Yes (Life-Threatening, Other)
  Sender: FDA-Public Use
  Company Number: HQWYE964014DEC04

PATIENT
  Age: 28 Year
  Sex: Female

DRUGS (4)
  1. MINOMYCIN               (MINOCYCLINE, INJECTION) [Suspect]
     Indication: PNEUMONIA
     Dosage: INTRAVENOUS DRIP
     Route: 041
     Dates: start: 20041206, end: 20041206
  2. CLARITHROMYCIN [Suspect]
     Indication: PNEUMONIA
     Dosage: 400 MG/DAY ORAL
     Route: 048
     Dates: start: 20041204, end: 20041205
  3. MUCOSOLVAN          (AMBROXOL HYDROCHLORIDE,) [Suspect]
     Indication: PNEUMONIA
     Dosage: 45 MG/DAY ORAL
     Route: 048
     Dates: start: 20041204, end: 20041205
  4. SULTAMICILLIN TOSILATE                (SULTAMICILLIN TOSILATE) [Concomitant]

REACTIONS (2)
  - ANAPHYLACTOID SHOCK [None]
  - DEPRESSED LEVEL OF CONSCIOUSNESS [None]
